FAERS Safety Report 7303776-9 (Version None)
Quarter: 2011Q1

REPORT INFORMATION
  Report Type: 
  Country: None (occurrence: None)
  Receive Date: 20110221
  Receipt Date: 20110114
  Transmission Date: 20110831
  Serious: Yes (Other)
  Sender: FDA-Public Use
  Company Number: US-ROCHE-756944

PATIENT
  Sex: Female
  Weight: 59 kg

DRUGS (4)
  1. CLONAZEPAM [Suspect]
     Indication: SOMNOLENCE
     Dosage: 01 WAFER
     Route: 048
  2. ARIMIDEX [Concomitant]
  3. GLUCOSAMINE [Concomitant]
  4. CLONAZEPAM [Suspect]
     Dosage: FORM: WAFER. FREQ: HS, AT BEDTIME
     Route: 048

REACTIONS (7)
  - CONFUSIONAL STATE [None]
  - DRY EYE [None]
  - DRUG EFFECT DECREASED [None]
  - VISION BLURRED [None]
  - BLOOD ALKALINE PHOSPHATASE INCREASED [None]
  - ASPARTATE AMINOTRANSFERASE INCREASED [None]
  - ALANINE AMINOTRANSFERASE INCREASED [None]
